FAERS Safety Report 7022649-2 (Version None)
Quarter: 2010Q3

REPORT INFORMATION
  Report Type: 
  Country: None (occurrence: None)
  Receive Date: 20100930
  Receipt Date: 20100920
  Transmission Date: 20110219
  Serious: Yes (Death)
  Sender: FDA-Public Use
  Company Number: BR-PFIZER INC-2010099624

PATIENT
  Age: 66 Year
  Sex: Male

DRUGS (2)
  1. VIAGRA [Suspect]
     Indication: ERECTILE DYSFUNCTION
     Dosage: 1 TABLET (UNKNOWN STRENGTH)
     Route: 048
     Dates: start: 20050101
  2. FRONTAL [Concomitant]
     Indication: DEPRESSION
     Dosage: 1 TABLET (UNKNOWN STRENGTH)
     Dates: start: 20020101

REACTIONS (1)
  - MYOCARDIAL INFARCTION [None]
